FAERS Safety Report 6041621-2 (Version None)
Quarter: 2009Q1

REPORT INFORMATION
  Report Type: 
  Country: None (occurrence: None)
  Receive Date: 20090116
  Receipt Date: 20081027
  Transmission Date: 20090719
  Serious: No
  Sender: FDA-Public Use
  Company Number: US-BRISTOL-MYERS SQUIBB COMPANY-14384648

PATIENT
  Age: 59 Year
  Sex: Male
  Weight: 61 kg

DRUGS (1)
  1. ABILIFY [Suspect]
     Dates: start: 20080501, end: 20080701

REACTIONS (2)
  - MYOPATHY [None]
  - PNEUMONIA [None]
